FAERS Safety Report 25791732 (Version 1)
Quarter: 2025Q3

REPORT INFORMATION
  Report Type: Spontaneous
  Country: US (occurrence: US)
  Receive Date: 20250911
  Receipt Date: 20250911
  Transmission Date: 20251021
  Serious: Yes (Other)
  Sender: BRISTOL-MYERS SQUIBB COMPANY
  Company Number: US-BRISTOL-MYERS SQUIBB COMPANY-2025-124713

PATIENT
  Age: 57 Year

DRUGS (1)
  1. OPDIVO [Suspect]
     Active Substance: NIVOLUMAB
     Indication: Product used for unknown indication
     Dates: end: 20250822

REACTIONS (1)
  - Malignant neoplasm progression [Unknown]
